FAERS Safety Report 15916724 (Version 1)
Quarter: 2019Q1

REPORT INFORMATION
  Report Type: Spontaneous
  Country: US (occurrence: US)
  Receive Date: 20190115
  Receipt Date: 20190115
  Transmission Date: 20190417
  Serious: No
  Sender: FDA-Public Use
  Company Number: None

PATIENT
  Age: 39 Year
  Sex: Female
  Weight: 54.43 kg

DRUGS (4)
  1. RAINBOW LIGHT DAILY MULTI-VITAMIN [Concomitant]
  2. ACCLEAN [Suspect]
     Active Substance: SODIUM FLUORIDE
     Indication: PROPHYLAXIS
     Dosage: ?          QUANTITY:1.1 % PERCENT;?
     Route: 048
     Dates: start: 20180918, end: 20190103
  3. DIFFERIN GEL [Concomitant]
     Active Substance: ADAPALENE
  4. ACCLEAN [Suspect]
     Active Substance: SODIUM FLUORIDE
     Indication: DENTAL CARIES
     Dosage: ?          QUANTITY:1.1 % PERCENT;?
     Route: 048
     Dates: start: 20180918, end: 20190103

REACTIONS (5)
  - Skin tightness [None]
  - Perioral dermatitis [None]
  - Scar [None]
  - Pruritus [None]
  - Maternal exposure during breast feeding [None]

NARRATIVE: CASE EVENT DATE: 20180918
